FAERS Safety Report 7276418-9 (Version None)
Quarter: 2011Q1

REPORT INFORMATION
  Report Type: 
  Country: None (occurrence: None)
  Receive Date: 20110204
  Receipt Date: 20110126
  Transmission Date: 20110831
  Serious: Yes (Hospitalization)
  Sender: FDA-Public Use
  Company Number: US-ASTRAZENECA-2011SE04913

PATIENT
  Age: 48 Year
  Sex: Male

DRUGS (2)
  1. SYMBICORT [Suspect]
     Indication: PULMONARY CONGESTION
     Dosage: TOTAL DAILY DOSAGE: 160/4.5 MCG; 2 PUFFS, TWO TIMES A DAY.
     Route: 055
  2. NEXIUM [Concomitant]
     Route: 048

REACTIONS (1)
  - MYOCARDIAL INFARCTION [None]
